FAERS Safety Report 10946475 (Version 1)
Quarter: 2015Q1

REPORT INFORMATION
  Report Type: Spontaneous
  Country: US (occurrence: None)
  Receive Date: 20150212
  Receipt Date: 20150212
  Transmission Date: 20150721
  Serious: Yes (Other)
  Sender: FDA-Public Use
  Company Number: TPA2012A04089

PATIENT
  Age: 42 Year
  Sex: Male

DRUGS (3)
  1. ULORIC [Suspect]
     Active Substance: FEBUXOSTAT
     Indication: GOUT
     Route: 048
     Dates: start: 2010, end: 2012
  2. COLCRYS [Concomitant]
     Active Substance: COLCHICINE
     Indication: GOUT
  3. COLCRYS [Concomitant]
     Active Substance: COLCHICINE
     Indication: PROPHYLAXIS

REACTIONS (1)
  - Acute myocardial infarction [None]
